FAERS Safety Report 24283546 (Version 1)
Quarter: 2024Q3

REPORT INFORMATION
  Report Type: Spontaneous
  Country: CN (occurrence: CN)
  Receive Date: 20240904
  Receipt Date: 20240904
  Transmission Date: 20241016
  Serious: Yes (Hospitalization)
  Sender: ABBVIE
  Company Number: None

PATIENT

DRUGS (5)
  1. ESCITALOPRAM [Suspect]
     Active Substance: ESCITALOPRAM OXALATE
     Indication: Congenital disorder of glycosylation
     Dosage: 5 MILLIGRAM
     Route: 065
     Dates: start: 202208, end: 2022
  2. ESCITALOPRAM [Suspect]
     Active Substance: ESCITALOPRAM OXALATE
     Indication: Congenital disorder of glycosylation
     Dosage: TITRATED TO 20 MG/DAY
     Route: 065
     Dates: start: 2022, end: 2022
  3. ESCITALOPRAM [Suspect]
     Active Substance: ESCITALOPRAM OXALATE
     Indication: Congenital disorder of glycosylation
     Dosage: 20 MILLIGRAM
     Route: 065
     Dates: start: 2022
  4. RISPERIDONE [Suspect]
     Active Substance: RISPERIDONE
     Indication: Congenital disorder of glycosylation
     Dosage: INCREASED FROM DAY 9
     Route: 065
     Dates: start: 2022, end: 2022
  5. RISPERIDONE [Suspect]
     Active Substance: RISPERIDONE
     Indication: Congenital disorder of glycosylation
     Dosage: 1 MILLIGRAM
     Route: 065
     Dates: start: 202208, end: 2022

REACTIONS (5)
  - Product administered to patient of inappropriate age [Unknown]
  - Weight increased [Unknown]
  - Dyskinesia [Unknown]
  - Nervousness [Unknown]
  - Dystonia [Recovering/Resolving]

NARRATIVE: CASE EVENT DATE: 20220101
